FAERS Safety Report 9873959 (Version 2)
Quarter: 2014Q1

REPORT INFORMATION
  Report Type: Other
  Country: US (occurrence: US)
  Receive Date: 20140206
  Receipt Date: 20140206
  Transmission Date: 20141002
  Serious: No
  Sender: FDA-Public Use
  Company Number: US-ACORDA-ACO_34008_2013

PATIENT
  Age: 54 Year
  Sex: Female
  Weight: 60.54 kg

DRUGS (1)
  1. AMPYRA [Suspect]
     Indication: MUSCLE SPASTICITY
     Dosage: 10 MG, BID
     Route: 048
     Dates: start: 201212

REACTIONS (2)
  - Muscle spasticity [Recovered/Resolved]
  - Insomnia [Unknown]
